FAERS Safety Report 7222315-4 (Version None)
Quarter: 2011Q1

REPORT INFORMATION
  Report Type: 
  Country: None (occurrence: None)
  Receive Date: 20110112
  Receipt Date: 20110106
  Transmission Date: 20110831
  Serious: Yes (Other)
  Sender: FDA-Public Use
  Company Number: US-PFIZER INC-2011005944

PATIENT
  Sex: Female
  Weight: 68.027 kg

DRUGS (2)
  1. XANAX XR [Suspect]
     Indication: PANIC ATTACK
     Dosage: 1 MG, 1X/DAY
     Route: 048
     Dates: start: 20100101, end: 20100101
  2. XANAX [Suspect]
     Indication: PANIC ATTACK
     Dosage: UNK
     Route: 048

REACTIONS (2)
  - PANIC ATTACK [None]
  - WITHDRAWAL SYNDROME [None]
